FAERS Safety Report 10775406 (Version 2)
Quarter: 2015Q1

REPORT INFORMATION
  Report Type: Spontaneous
  Country: US (occurrence: None)
  Receive Date: 20150205
  Receipt Date: 20150304
  Transmission Date: 20150721
  Serious: Yes (Other)
  Sender: FDA-Public Use
  Company Number: US-H14001-15-00157

PATIENT
  Age: 53 Year
  Sex: Female
  Weight: 78.2 kg

DRUGS (3)
  1. GENTAMYCIN [Suspect]
     Active Substance: GENTAMICIN
     Indication: CHILLS
     Route: 042
     Dates: start: 20150108, end: 20150110
  2. CEFAZOLIN [Suspect]
     Active Substance: CEFAZOLIN
     Indication: CHILLS
     Dosage: X1, NOT OTHERWISE SPECIFIED
     Route: 042
     Dates: start: 20150110, end: 20150113
  3. VANCOMYCIN [Suspect]
     Active Substance: VANCOMYCIN
     Indication: CHILLS
     Dates: start: 20150108, end: 20150110

REACTIONS (11)
  - Oral mucosal blistering [None]
  - Genital blister [None]
  - Pruritus [None]
  - Tongue blistering [None]
  - Swelling face [None]
  - Feeding disorder [None]
  - Peripheral swelling [None]
  - Erythema [None]
  - Stevens-Johnson syndrome [None]
  - Drug hypersensitivity [None]
  - Palmar erythema [None]

NARRATIVE: CASE EVENT DATE: 201501
